FAERS Safety Report 26162499 (Version 1)
Quarter: 2025Q4

REPORT INFORMATION
  Report Type: Spontaneous
  Country: US (occurrence: US)
  Receive Date: 20251216
  Receipt Date: 20251216
  Transmission Date: 20260119
  Serious: Yes (Other)
  Sender: ALEMBIC
  Company Number: US-ALEMBIC PHARMACUETICALS LIMITED-2025SCAL001736

PATIENT

DRUGS (1)
  1. TESTOSTERONE [Suspect]
     Active Substance: TESTOSTERONE
     Indication: Muscle building therapy
     Dosage: UNK
     Route: 065

REACTIONS (14)
  - Cardiomyopathy [Recovering/Resolving]
  - Atrial fibrillation [Recovering/Resolving]
  - Ventricular hypokinesia [Recovering/Resolving]
  - Dyspnoea [Recovering/Resolving]
  - Orthopnoea [Recovering/Resolving]
  - Hypervolaemia [Recovering/Resolving]
  - Nocturia [Recovering/Resolving]
  - Oedema peripheral [Recovering/Resolving]
  - Venous pressure jugular increased [Recovering/Resolving]
  - Rales [Recovering/Resolving]
  - Heart sounds abnormal [Recovering/Resolving]
  - Oedema [Recovering/Resolving]
  - Ejection fraction decreased [Recovering/Resolving]
  - Polycythaemia [Recovering/Resolving]
